FAERS Safety Report 14297584 (Version 7)
Quarter: 2018Q3

REPORT INFORMATION
  Report Type: Spontaneous
  Country: DE (occurrence: DE)
  Receive Date: 20171218
  Receipt Date: 20180827
  Transmission Date: 20181010
  Serious: Yes (Hospitalization, Other)
  Sender: FDA-Public Use
  Company Number: PHHY2017DE184885

PATIENT
  Age: 63 Year
  Sex: Female
  Weight: 78 kg

DRUGS (12)
  1. PERTUZUMAB. [Suspect]
     Active Substance: PERTUZUMAB
     Dosage: 480 MG, UNK
     Route: 042
     Dates: start: 20170901, end: 20171127
  2. TRASTUZUMAB. [Suspect]
     Active Substance: TRASTUZUMAB
     Dosage: 420 MG, UNK
     Route: 042
     Dates: end: 20180315
  3. TRASTUZUMAB EMTANSINE [Suspect]
     Active Substance: ADO-TRASTUZUMAB EMTANSINE
     Indication: BREAST CANCER METASTATIC
     Dosage: 288 MG, UNK
     Route: 042
     Dates: start: 20180404
  4. DOCETAXEL. [Suspect]
     Active Substance: DOCETAXEL
     Indication: HER-2 POSITIVE BREAST CANCER
     Dosage: 157 MG, QW
     Route: 042
     Dates: start: 20170908
  5. DOCETAXEL. [Suspect]
     Active Substance: DOCETAXEL
     Dosage: 157 MG, QW
     Route: 042
     Dates: end: 20171117
  6. TRASTUZUMAB. [Suspect]
     Active Substance: TRASTUZUMAB
     Indication: HER-2 POSITIVE BREAST CANCER
     Dosage: 480 MG, UNK
     Route: 042
     Dates: start: 20170901
  7. DOCETAXEL. [Suspect]
     Active Substance: DOCETAXEL
     Dosage: 168 MG, QW
     Route: 042
     Dates: start: 20171110, end: 20171110
  8. TRASTUZUMAB. [Suspect]
     Active Substance: TRASTUZUMAB
     Dosage: 480 MG, Q3W
     Route: 042
     Dates: start: 20170922
  9. PERTUZUMAB. [Suspect]
     Active Substance: PERTUZUMAB
     Indication: HER-2 POSITIVE BREAST CANCER
     Dosage: 420 MG, Q3W
     Route: 042
     Dates: start: 20170922
  10. HERCEPTIN [Suspect]
     Active Substance: TRASTUZUMAB
     Indication: HER-2 POSITIVE BREAST CANCER
     Dosage: 480 MG, QW
     Route: 042
     Dates: start: 20170922
  11. TRASTUZUMAB. [Suspect]
     Active Substance: TRASTUZUMAB
     Dosage: 420 MG, UNK
     Route: 042
     Dates: start: 20170922, end: 20180131
  12. TRASTUZUMAB. [Suspect]
     Active Substance: TRASTUZUMAB
     Dosage: 480 MG, UNK
     Route: 042
     Dates: start: 20170901, end: 20180131

REACTIONS (16)
  - Sensory disturbance [Not Recovered/Not Resolved]
  - Metastases to central nervous system [Not Recovered/Not Resolved]
  - Pneumonia [Not Recovered/Not Resolved]
  - Dysuria [Recovered/Resolved]
  - Polyneuropathy [Not Recovered/Not Resolved]
  - Nocturia [Not Recovered/Not Resolved]
  - Urinary tract infection [Not Recovered/Not Resolved]
  - Herpes zoster [Not Recovered/Not Resolved]
  - Nail bed bleeding [Not Recovered/Not Resolved]
  - Fatigue [Not Recovered/Not Resolved]
  - Drug ineffective [Unknown]
  - Muscular weakness [Recovered/Resolved]
  - Headache [Recovered/Resolved]
  - Dyspnoea [Recovered/Resolved]
  - Cataract [Not Recovered/Not Resolved]
  - Malignant neoplasm progression [Not Recovered/Not Resolved]

NARRATIVE: CASE EVENT DATE: 20170901
